FAERS Safety Report 10393085 (Version 1)
Quarter: 2014Q3

REPORT INFORMATION
  Report Type: Spontaneous
  Country: US (occurrence: US)
  Receive Date: 20140819
  Receipt Date: 20140819
  Transmission Date: 20150326
  Serious: Yes (Hospitalization)
  Sender: FDA-Public Use
  Company Number: US-B.I. PHARMACEUTICALS,INC./RIDGEFIELD-2014-BI-37238BP

PATIENT
  Age: 96 Year
  Sex: Female

DRUGS (11)
  1. ARIMIDEX [Concomitant]
     Active Substance: ANASTROZOLE
     Dosage: 1 MG
     Route: 048
  2. SOTALOL HCL [Concomitant]
     Active Substance: SOTALOL
     Dosage: 240 MG
     Route: 048
  3. LASIX [Concomitant]
     Active Substance: FUROSEMIDE
     Dosage: 40 MG
     Route: 048
  4. PRADAXA [Suspect]
     Active Substance: DABIGATRAN ETEXILATE MESYLATE
     Indication: ATRIAL FIBRILLATION
     Route: 065
  5. KCL ER [Concomitant]
     Dosage: 20 MEQ
     Route: 048
  6. SIMVASTATIN. [Concomitant]
     Active Substance: SIMVASTATIN
     Dosage: 20 MG
     Route: 048
  7. MAG OX [Concomitant]
     Active Substance: MAGNESIUM OXIDE
     Dosage: 800 MG
     Route: 048
  8. LISINOPRIL. [Concomitant]
     Active Substance: LISINOPRIL
     Dosage: 40 MG
     Route: 048
  9. LEVOTHYROXINE SODIUM. [Concomitant]
     Active Substance: LEVOTHYROXINE SODIUM
     Dosage: 25 MCG
     Route: 048
  10. PRADAXA [Suspect]
     Active Substance: DABIGATRAN ETEXILATE MESYLATE
     Dosage: 75 MG
     Route: 048
     Dates: end: 20130627
  11. DIGOXIN. [Concomitant]
     Active Substance: DIGOXIN
     Dosage: 0.125 MG
     Route: 048

REACTIONS (2)
  - Haematuria [Unknown]
  - Lower gastrointestinal haemorrhage [Unknown]

NARRATIVE: CASE EVENT DATE: 20130627
